FAERS Safety Report 8810795 (Version 1)
Quarter: 2012Q4

REPORT INFORMATION
  Report Type: 
  Country: US (occurrence: US)
  Receive Date: 20120927
  Receipt Date: 20120927
  Transmission Date: 20130627
  Serious: No
  Sender: FDA-Public Use
  Company Number: US-JNJFOC-20120908663

PATIENT
  Sex: Male
  Weight: 149.69 kg

DRUGS (2)
  1. SANDOZ FENTANYL TRANSDERMAL SYSTEM [Suspect]
     Indication: JUVENILE ARTHRITIS
     Route: 062
     Dates: start: 2012
  2. MANY OTHER UNSPECIFIED MEDICATIONS [Concomitant]
     Indication: PRE-EXISTING DISEASE
     Route: 065

REACTIONS (2)
  - Drug administered at inappropriate site [Not Recovered/Not Resolved]
  - Product quality issue [Unknown]
